FAERS Safety Report 15331864 (Version 3)
Quarter: 2018Q4

REPORT INFORMATION
  Report Type: Not Available
  Country: US (occurrence: US)
  Receive Date: 20180829
  Receipt Date: 20181025
  Transmission Date: 20190204
  Serious: Yes (Hospitalization)
  Sender: FDA-Public Use
  Company Number: US-NEUROCRINE BIOSCIENCES INC.-2018NBI02559

PATIENT
  Sex: Female

DRUGS (28)
  1. IRON [Concomitant]
     Active Substance: IRON
  2. MULTI COMPLETE [Concomitant]
  3. POTASSIUM [Concomitant]
     Active Substance: POTASSIUM
  4. FUROSEMIDE. [Concomitant]
     Active Substance: FUROSEMIDE
  5. LISINOPRIL. [Concomitant]
     Active Substance: LISINOPRIL
  6. MONTELUKAST [Concomitant]
     Active Substance: MONTELUKAST SODIUM
  7. ASPRIN [Concomitant]
     Active Substance: ASPIRIN
  8. BREO ELLIPTA [Concomitant]
     Active Substance: FLUTICASONE FUROATE\VILANTEROL TRIFENATATE
  9. FLUTICASONE. [Concomitant]
     Active Substance: FLUTICASONE
  10. OMEPRAZOLE. [Concomitant]
     Active Substance: OMEPRAZOLE
  11. INGREZZA [Suspect]
     Active Substance: VALBENAZINE
     Route: 048
     Dates: start: 20180316, end: 20181001
  12. DONEPEZIL. [Concomitant]
     Active Substance: DONEPEZIL
  13. FLUCONAZOLE. [Concomitant]
     Active Substance: FLUCONAZOLE
  14. GABAPENTIN. [Concomitant]
     Active Substance: GABAPENTIN
  15. PANTOPRAZOLE [Concomitant]
     Active Substance: PANTOPRAZOLE
  16. TACLONEX [Concomitant]
     Active Substance: BETAMETHASONE DIPROPIONATE\CALCIPOTRIENE\CALCIPOTRIENE HYDRATE
  17. AMLODIPINE [Concomitant]
     Active Substance: AMLODIPINE BESYLATE
  18. CALCIUM + D3 [Concomitant]
     Active Substance: CALCIUM\CHOLECALCIFEROL
  19. XANAX [Concomitant]
     Active Substance: ALPRAZOLAM
  20. CLOBETASOL PROPIONATE E [Concomitant]
  21. DOCUSATE [Concomitant]
     Active Substance: DOCUSATE
  22. LIDOCAINE. [Concomitant]
     Active Substance: LIDOCAINE
  23. LORAZEPAM. [Concomitant]
     Active Substance: LORAZEPAM
  24. MEMANTINE. [Concomitant]
     Active Substance: MEMANTINE
  25. INGREZZA [Suspect]
     Active Substance: VALBENAZINE
     Indication: PRODUCT USED FOR UNKNOWN INDICATION
     Route: 048
     Dates: start: 20180309, end: 20180315
  26. BENZTROPINE. [Concomitant]
     Active Substance: BENZTROPINE
  27. BUPROPION. [Concomitant]
     Active Substance: BUPROPION
  28. HYDROXYCHLOROQUINE [Concomitant]
     Active Substance: HYDROXYCHLOROQUINE

REACTIONS (4)
  - Anxiety [Unknown]
  - Headache [Not Recovered/Not Resolved]
  - Pain in extremity [Not Recovered/Not Resolved]
  - Drooling [Not Recovered/Not Resolved]

NARRATIVE: CASE EVENT DATE: 2018
